FAERS Safety Report 20363798 (Version 2)
Quarter: 2022Q1

REPORT INFORMATION
  Report Type: Spontaneous
  Country: US (occurrence: None)
  Receive Date: 20220121
  Receipt Date: 20220307
  Transmission Date: 20220423
  Serious: No
  Sender: FDA-Public Use
  Company Number: 2022A015316

PATIENT
  Age: 73 Year
  Sex: Female
  Weight: 72.6 kg

DRUGS (2)
  1. BUDESONIDE\FORMOTEROL\GLYCOPYRRONIUM [Suspect]
     Active Substance: BUDESONIDE\FORMOTEROL\GLYCOPYRRONIUM
     Dosage: 160/9/4.8 MCG 2 RESPIRATORY INHALATIONS TWICE A DAY
     Route: 055
     Dates: end: 20220104
  2. BEVESPI AEROSPHERE [Suspect]
     Active Substance: FORMOTEROL FUMARATE\GLYCOPYRROLATE
     Dosage: 9/4.8 MCG TWO RESPIRATORY INHALATIONS TWICE A DAY START DATE
     Route: 055

REACTIONS (8)
  - Chronic obstructive pulmonary disease [Unknown]
  - Emphysema [Unknown]
  - Diarrhoea [Unknown]
  - Weight decreased [Unknown]
  - Faeces discoloured [Unknown]
  - Pneumonia [Unknown]
  - Device malfunction [Unknown]
  - Product dose omission issue [Unknown]

NARRATIVE: CASE EVENT DATE: 20220104
